FAERS Safety Report 20485494 (Version 1)
Quarter: 2022Q1

REPORT INFORMATION
  Report Type: Spontaneous
  Country: US (occurrence: None)
  Receive Date: 20220217
  Receipt Date: 20220217
  Transmission Date: 20220423
  Serious: No
  Sender: FDA-Public Use
  Company Number: US-Merck Healthcare KGaA-9300181

PATIENT
  Age: 44 Year
  Sex: Female

DRUGS (1)
  1. REBIF [Suspect]
     Active Substance: INTERFERON BETA-1A
     Indication: Product used for unknown indication
     Route: 058
     Dates: start: 2010, end: 201910

REACTIONS (3)
  - Influenza like illness [Unknown]
  - Fatigue [Unknown]
  - Needle fatigue [Unknown]

NARRATIVE: CASE EVENT DATE: 20130101
